FAERS Safety Report 9405842 (Version 3)
Quarter: 2014Q2

REPORT INFORMATION
  Report Type: Spontaneous
  Country: US (occurrence: US)
  Receive Date: 20130717
  Receipt Date: 20140523
  Transmission Date: 20141212
  Serious: Yes (Death, Hospitalization)
  Sender: FDA-Public Use
  Company Number: US-GLAXOSMITHKLINE-A1033208A

PATIENT
  Sex: Male

DRUGS (2)
  1. AVANDIA [Suspect]
     Indication: DIABETES MELLITUS
     Dosage: 4MG TWICE PER DAY
     Route: 048
     Dates: start: 20030804, end: 20060523
  2. AVANDAMET [Suspect]
     Indication: DIABETES MELLITUS
     Route: 048
     Dates: start: 20070119, end: 20071007

REACTIONS (5)
  - Ischaemic cardiomyopathy [Fatal]
  - Cardiac failure congestive [Fatal]
  - Myocardial infarction [Unknown]
  - Hypotension [Unknown]
  - Cardiac disorder [Unknown]
